FAERS Safety Report 16080193 (Version 2)
Quarter: 2020Q1

REPORT INFORMATION
  Report Type: Spontaneous
  Country: US (occurrence: US)
  Receive Date: 20190315
  Receipt Date: 20200103
  Transmission Date: 20200409
  Serious: Yes (Hospitalization, Other)
  Sender: FDA-Public Use
  Company Number: US-JNJFOC-20190302897

PATIENT
  Age: 34 Year
  Sex: Male
  Weight: 84.54 kg

DRUGS (2)
  1. XARELTO [Suspect]
     Active Substance: RIVAROXABAN
     Indication: THROMBOSIS PROPHYLAXIS
     Route: 048
     Dates: start: 20130531, end: 20130930
  2. XARELTO [Suspect]
     Active Substance: RIVAROXABAN
     Indication: COAGULATION FACTOR MUTATION
     Route: 048
     Dates: start: 201304, end: 201705

REACTIONS (5)
  - Cerebral haemorrhage [Unknown]
  - Blood urine present [Unknown]
  - Upper gastrointestinal haemorrhage [Unknown]
  - Rectal haemorrhage [Unknown]
  - Epistaxis [Unknown]

NARRATIVE: CASE EVENT DATE: 201305
